FAERS Safety Report 16021122 (Version 1)
Quarter: 2019Q1

REPORT INFORMATION
  Report Type: Spontaneous
  Country: DE (occurrence: DE)
  Receive Date: 20190301
  Receipt Date: 20190301
  Transmission Date: 20190418
  Serious: Yes (Hospitalization)
  Sender: FDA-Public Use
  Company Number: DE-ACCORD-110010

PATIENT
  Age: 77 Year
  Sex: Female

DRUGS (11)
  1. CIATYL-Z [Interacting]
     Active Substance: ZUCLOPENTHIXOL
     Indication: PRODUCT USED FOR UNKNOWN INDICATION
     Dosage: ALSO RECEIVED 25 MG FROM 11-AUG-2016 TO 21-AUG-2016
     Route: 065
     Dates: start: 20160809, end: 20160810
  2. FUROSEMIDE. [Concomitant]
     Active Substance: FUROSEMIDE
     Dosage: DOSAGE FORM: UNSPECIFIED
     Route: 048
     Dates: start: 20160810
  3. TAVOR [Concomitant]
     Route: 065
     Dates: start: 20160803
  4. LEVOTHYROXINE. [Concomitant]
     Active Substance: LEVOTHYROXINE
     Route: 048
  5. DIPIPERON [Interacting]
     Active Substance: PIPAMPERONE
     Indication: PRODUCT USED FOR UNKNOWN INDICATION
     Dosage: ADDITIONAL REGIMEN RECEIVED TILL 26-JUL-2016
     Route: 065
     Dates: start: 2016, end: 20160802
  6. VALSARTAN. [Concomitant]
     Active Substance: VALSARTAN
     Route: 048
  7. BISOPROLOL [Concomitant]
     Active Substance: BISOPROLOL
     Route: 048
  8. RISPERDAL [Interacting]
     Active Substance: RISPERIDONE
     Indication: PRODUCT USED FOR UNKNOWN INDICATION
     Dosage: 2 MG FROM 18-AUG-2016 TO 19-AUG-2016, 4 MG 28-JUL-2016 TO 07-AUG-2016 AND 0.5 MG ON 22-AUG-2016
     Route: 048
     Dates: start: 20160727
  9. TORASEMIDE [Concomitant]
     Active Substance: TORSEMIDE
     Route: 048
     Dates: end: 20160809
  10. TILIDIN [Concomitant]
     Active Substance: NALOXONE HYDROCHLORIDE\TILIDINE HYDROCHLORIDE
     Route: 048
  11. CLOZAPINE. [Suspect]
     Active Substance: CLOZAPINE
     Indication: PRODUCT USED FOR UNKNOWN INDICATION
     Dosage: ALSO RECEIVED 6.25 MG ON 17-AUG-2016, 12.5 MG ON 18-AUG-2016, 25 MG ON 19-AUG-2016
     Route: 048
     Dates: start: 20160820, end: 20160821

REACTIONS (7)
  - Pyrexia [Recovering/Resolving]
  - Drug interaction [Unknown]
  - Muscle rigidity [Recovering/Resolving]
  - Extrapyramidal disorder [Unknown]
  - Rhabdomyolysis [Recovering/Resolving]
  - Neuroleptic malignant syndrome [Recovered/Resolved]
  - Drug ineffective [Unknown]

NARRATIVE: CASE EVENT DATE: 20160801
